FAERS Safety Report 19223238 (Version 1)
Quarter: 2021Q2

REPORT INFORMATION
  Report Type: Spontaneous
  Country: US (occurrence: US)
  Receive Date: 20210505
  Receipt Date: 20210505
  Transmission Date: 20210717
  Serious: No
  Sender: FDA-Public Use
  Company Number: US-ROCHE-2729863

PATIENT
  Age: 72 Year
  Sex: Female

DRUGS (2)
  1. ESBRIET [Suspect]
     Active Substance: PIRFENIDONE
     Indication: IDIOPATHIC PULMONARY FIBROSIS
     Dosage: THREE TIMES A DAY AT BREAKFAST, LUNCH AND DINNER, 3 WEEKS TITRATION
     Route: 048
     Dates: start: 20200719
  2. ESBRIET [Suspect]
     Active Substance: PIRFENIDONE
     Dosage: THREE TIMES A DAY AT BREAKFAST, LUNCH AND DINNER
     Route: 048

REACTIONS (3)
  - Decreased appetite [Unknown]
  - Nausea [Unknown]
  - Insomnia [Unknown]
